FAERS Safety Report 10178174 (Version 1)
Quarter: 2014Q2

REPORT INFORMATION
  Report Type: Spontaneous
  Country: US (occurrence: US)
  Receive Date: 20140519
  Receipt Date: 20140519
  Transmission Date: 20141212
  Serious: Yes (Hospitalization)
  Sender: FDA-Public Use
  Company Number: US-JNJFOC-20140503058

PATIENT
  Age: 7 Decade
  Sex: Male

DRUGS (3)
  1. ZYTIGA [Suspect]
     Indication: PROSTATE CANCER
     Dosage: 250 MGX4
     Route: 048
  2. PREDNISONE [Concomitant]
     Indication: PROSTATE CANCER
     Route: 048
  3. LHRH AGONIST [Concomitant]
     Indication: PROSTATE CANCER
     Route: 065

REACTIONS (3)
  - Fatigue [Not Recovered/Not Resolved]
  - Liver disorder [Not Recovered/Not Resolved]
  - Somnolence [Not Recovered/Not Resolved]
